FAERS Safety Report 9526113 (Version 3)
Quarter: 2014Q1

REPORT INFORMATION
  Report Type: Report from Study
  Country: US (occurrence: US)
  Receive Date: 20130916
  Receipt Date: 20140207
  Transmission Date: 20141002
  Serious: Yes (Other)
  Sender: FDA-Public Use
  Company Number: US-ABBVIE-13P-163-1069569-00

PATIENT
  Age: 59 Year
  Sex: Male

DRUGS (14)
  1. HUMIRA [Suspect]
     Indication: CROHN^S DISEASE
     Dosage: LOADING DOSE
     Dates: start: 20130304, end: 20130304
  2. HUMIRA [Suspect]
     Dosage: SECOND DOSE
     Dates: start: 20130318, end: 20130318
  3. HUMIRA [Suspect]
  4. ASACOL [Concomitant]
     Indication: CROHN^S DISEASE
  5. ASACOL [Concomitant]
     Dosage: TAPERED OFF
  6. VALSARTAN HCT [Concomitant]
     Indication: HYPERTENSION
     Dosage: 320/125 MG DAILY
  7. XANAX [Concomitant]
     Indication: ANXIETY
  8. RANITIDINE [Concomitant]
     Indication: GASTROOESOPHAGEAL REFLUX DISEASE
     Dosage: 300 MG DAILY OR AS REQUIRED
  9. SYMBICORT [Concomitant]
     Indication: ASTHMA
     Route: 055
  10. DOCUSATE SODIUM [Concomitant]
     Indication: CROHN^S DISEASE
     Dosage: AT NIGHT BEFORE BED
  11. SORIATANE [Concomitant]
     Indication: PSORIASIS
  12. SORIATANE [Concomitant]
     Indication: DERMATITIS CONTACT
  13. ADVIL [Concomitant]
     Indication: PAIN
  14. TYLENOL EXTRA STRENGTH [Concomitant]
     Indication: PAIN

REACTIONS (25)
  - Musculoskeletal pain [Not Recovered/Not Resolved]
  - Joint range of motion decreased [Recovering/Resolving]
  - Periarthritis [Unknown]
  - Proctalgia [Recovering/Resolving]
  - Drug ineffective [Recovering/Resolving]
  - Movement disorder [Recovering/Resolving]
  - Gastrointestinal inflammation [Recovering/Resolving]
  - Intestinal stenosis [Recovering/Resolving]
  - Skin lesion [Unknown]
  - Photosensitivity reaction [Unknown]
  - Frequent bowel movements [Not Recovered/Not Resolved]
  - Rash [Recovered/Resolved]
  - Proctitis [Not Recovered/Not Resolved]
  - Fatigue [Unknown]
  - Psoriasis [Recovering/Resolving]
  - Weight increased [Unknown]
  - Decreased activity [Unknown]
  - Fall [Unknown]
  - Skin wound [Unknown]
  - Excoriation [Unknown]
  - Dyspnoea [Unknown]
  - Arthralgia [Not Recovered/Not Resolved]
  - Erythema [Unknown]
  - Diarrhoea [Not Recovered/Not Resolved]
  - Influenza [Unknown]
